FAERS Safety Report 5817744-7 (Version None)
Quarter: 2008Q3

REPORT INFORMATION
  Report Type: 
  Country: None (occurrence: None)
  Receive Date: 20080722
  Receipt Date: 20080716
  Transmission Date: 20090109
  Serious: Yes (Other)
  Sender: FDA-Public Use
  Company Number: PHHY2008FR14285

PATIENT
  Age: 3 Year
  Sex: Female

DRUGS (2)
  1. STERDEX (NVO) [Suspect]
     Dosage: UNK
     Dates: start: 20080101
  2. STERDEX (NVO) [Suspect]
     Dosage: UNK
     Dates: start: 20080101

REACTIONS (3)
  - CHALAZION [None]
  - CURETTING OF CHALAZION [None]
  - DISEASE PROGRESSION [None]
